FAERS Safety Report 9322192 (Version 1)
Quarter: 2013Q2

REPORT INFORMATION
  Report Type: Spontaneous
  Country: GB (occurrence: GB)
  Receive Date: 20130531
  Receipt Date: 20130531
  Transmission Date: 20140414
  Serious: Yes (Other)
  Sender: FDA-Public Use
  Company Number: GB-009507513-1305GBR014490

PATIENT
  Age: 47 Year
  Sex: Female
  Weight: 46 kg

DRUGS (1)
  1. MIRTAZAPINE [Suspect]
     Indication: POST-TRAUMATIC STRESS DISORDER
     Dosage: 15 MG, UNK
     Route: 048
     Dates: end: 20130503

REACTIONS (3)
  - Oropharyngeal pain [Recovering/Resolving]
  - Neutrophil count decreased [Recovering/Resolving]
  - White blood cell count decreased [Recovering/Resolving]
